FAERS Safety Report 6902160-7 (Version None)
Quarter: 2010Q3

REPORT INFORMATION
  Report Type: 
  Country: None (occurrence: None)
  Receive Date: 20100802
  Receipt Date: 20100802
  Transmission Date: 20110219
  Serious: Yes (Other)
  Sender: FDA-Public Use
  Company Number: None

PATIENT
  Age: 59 Year
  Sex: Male
  Weight: 75.4 kg

DRUGS (2)
  1. QUETIAPINE [Suspect]
     Indication: PSYCHOTIC DISORDER
     Dosage: 75 MG AT BEDTIME PO
     Route: 048
     Dates: start: 20100510, end: 20100728
  2. ZIPRASIDONE HCL [Suspect]
     Indication: PSYCHOTIC DISORDER
     Dosage: 60 MG EVERY DAY PO
     Route: 048
     Dates: start: 20100608, end: 20100728

REACTIONS (1)
  - LEUKOPENIA [None]
